FAERS Safety Report 5117822-4 (Version None)
Quarter: 2006Q3

REPORT INFORMATION
  Report Type: 
  Country: None (occurrence: None)
  Receive Date: 20060926
  Receipt Date: 20060918
  Transmission Date: 20061208
  Serious: Yes (Hospitalization)
  Sender: FDA-Public Use
  Company Number: E2090-00069-SPO-GB

PATIENT
  Age: 23 Year
  Sex: Female
  Weight: 100 kg

DRUGS (4)
  1. ZONEGRAN [Suspect]
     Indication: EPILEPSY
     Dosage: SEE IMAGE
     Route: 048
     Dates: start: 20060606, end: 20060601
  2. ZONEGRAN [Suspect]
     Indication: EPILEPSY
     Dosage: SEE IMAGE
     Route: 048
     Dates: start: 20060601, end: 20060619
  3. CARBAMAZEPINE [Concomitant]
  4. PREGABALAN [Concomitant]

REACTIONS (5)
  - ABDOMINAL PAIN [None]
  - CHOLELITHIASIS [None]
  - DRUG TOXICITY [None]
  - HEPATITIS [None]
  - HYPERSENSITIVITY [None]
